FAERS Safety Report 5713679-9 (Version None)
Quarter: 2008Q2

REPORT INFORMATION
  Report Type: 
  Country: None (occurrence: None)
  Receive Date: 20080418
  Receipt Date: 20080408
  Transmission Date: 20081010
  Serious: Yes (Death)
  Sender: FDA-Public Use
  Company Number: 1-16015401/MED-08076

PATIENT
  Age: 48 Year
  Sex: Male

DRUGS (7)
  1. LORAZEPAM [Suspect]
  2. SERTRALINE [Suspect]
  3. CODEINE SUL TAB [Suspect]
  4. ACETAMINOPHEN W/ CODEINE [Concomitant]
  5. BISACODYL [Concomitant]
  6. MORPHINE [Concomitant]
  7. CLONAZEPAM [Concomitant]

REACTIONS (8)
  - ARTERIOSCLEROSIS CORONARY ARTERY [None]
  - ARTERIOSPASM CORONARY [None]
  - BRONCHOPNEUMONIA [None]
  - DRUG TOXICITY [None]
  - ELECTROCARDIOGRAM QT PROLONGED [None]
  - PULMONARY OEDEMA [None]
  - RESPIRATORY DEPRESSION [None]
  - SEROTONIN SYNDROME [None]
